FAERS Safety Report 25468091 (Version 1)
Quarter: 2025Q2

REPORT INFORMATION
  Report Type: Spontaneous
  Country: US (occurrence: None)
  Receive Date: 20250620
  Receipt Date: 20250620
  Transmission Date: 20250717
  Serious: No
  Sender: FDA-CTU
  Company Number: None

PATIENT
  Age: 24 Year
  Sex: Female

DRUGS (1)
  1. BIMZELX [Suspect]
     Active Substance: BIMEKIZUMAB-BKZX
     Indication: Hidradenitis
     Route: 058

REACTIONS (4)
  - Adverse drug reaction [None]
  - Headache [None]
  - Decreased appetite [None]
  - Weight increased [None]

NARRATIVE: CASE EVENT DATE: 20250606
